FAERS Safety Report 16504598 (Version 1)
Quarter: 2019Q3

REPORT INFORMATION
  Report Type: Spontaneous
  Country: FR (occurrence: FR)
  Receive Date: 20190701
  Receipt Date: 20190701
  Transmission Date: 20191004
  Serious: Yes (Hospitalization, Other)
  Sender: FDA-Public Use
  Company Number: FR-MYLANLABS-2019M1060017

PATIENT
  Age: 40 Year
  Sex: Female

DRUGS (3)
  1. PAROXETINE. [Suspect]
     Active Substance: PAROXETINE
     Indication: PRODUCT USED FOR UNKNOWN INDICATION
     Dosage: 28 DOSAGE FORM, TOTAL
     Route: 048
     Dates: start: 20171230, end: 20171230
  2. TERCIAN                            /00759301/ [Suspect]
     Active Substance: CYAMEMAZINE
     Indication: PRODUCT USED FOR UNKNOWN INDICATION
     Dosage: 30 DOSAGE FORM, TOTAL
     Route: 048
     Dates: start: 20171230, end: 20171230
  3. DIAZEPAM. [Suspect]
     Active Substance: DIAZEPAM
     Indication: PRODUCT USED FOR UNKNOWN INDICATION
     Dosage: 15 DOSAGE FORM, TOTAL
     Route: 048
     Dates: start: 20171230, end: 20171230

REACTIONS (5)
  - Suicide attempt [Unknown]
  - Toxicity to various agents [Recovered/Resolved]
  - Coma scale abnormal [Recovered/Resolved]
  - Mydriasis [Recovered/Resolved]
  - Coma [Recovered/Resolved]

NARRATIVE: CASE EVENT DATE: 20171230
